FAERS Safety Report 12383859 (Version 1)
Quarter: 2016Q2

REPORT INFORMATION
  Report Type: Spontaneous
  Country: US (occurrence: US)
  Receive Date: 20160519
  Receipt Date: 20160519
  Transmission Date: 20160815
  Serious: No
  Sender: FDA-Public Use
  Company Number: US-HORIZON-RAV-0092-2016

PATIENT
  Sex: Female

DRUGS (2)
  1. RAVICTI [Suspect]
     Active Substance: GLYCEROL PHENYLBUTYRATE
     Indication: ORNITHINE TRANSCARBAMOYLASE DEFICIENCY
     Dosage: 16 ML DAILY
     Dates: start: 201509
  2. SODIUM BENZOATE [Concomitant]
     Active Substance: SODIUM BENZOATE
     Dosage: 4 MG
     Dates: start: 201601

REACTIONS (2)
  - Increased appetite [Unknown]
  - Nausea [Unknown]
